FAERS Safety Report 7629398-8 (Version None)
Quarter: 2011Q3

REPORT INFORMATION
  Report Type: 
  Country: None (occurrence: None)
  Receive Date: 20110722
  Receipt Date: 20110713
  Transmission Date: 20111222
  Serious: No
  Sender: FDA-Public Use
  Company Number: US-JNJFOC-20110706674

PATIENT
  Sex: Female

DRUGS (3)
  1. CHEMOTHERAPY [Concomitant]
     Indication: BREAST CANCER
     Route: 065
  2. VICODIN [Concomitant]
     Indication: PAIN
     Dosage: 75MG/EVERY 6HRS AS NEEDED.
     Route: 048
  3. FENTANYL-100 [Suspect]
     Indication: NEUROPATHY PERIPHERAL
     Route: 062
     Dates: start: 20100101

REACTIONS (3)
  - PRODUCT QUALITY ISSUE [None]
  - PAIN [None]
  - WRONG TECHNIQUE IN DRUG USAGE PROCESS [None]
